FAERS Safety Report 7655922-5 (Version None)
Quarter: 2011Q3

REPORT INFORMATION
  Report Type: 
  Country: None (occurrence: None)
  Receive Date: 20110804
  Receipt Date: 20110804
  Transmission Date: 20111222
  Serious: Yes (Other)
  Sender: FDA-Public Use
  Company Number: None

PATIENT

DRUGS (2)
  1. WELLNESS- HCG [Suspect]
     Indication: WEIGHT DECREASED
     Dosage: 1 OZ
     Dates: start: 20110601, end: 20110701
  2. WELLNESS- HGH LIQUID LIPO [Suspect]
     Indication: WEIGHT DECREASED
     Dosage: 1  OZ
     Dates: start: 20110601, end: 20110701

REACTIONS (4)
  - PALPITATIONS [None]
  - INSOMNIA [None]
  - DIARRHOEA [None]
  - ABDOMINAL PAIN UPPER [None]
